FAERS Safety Report 25618449 (Version 2)
Quarter: 2025Q4

REPORT INFORMATION
  Report Type: Spontaneous
  Country: GB (occurrence: GB)
  Receive Date: 20250729
  Receipt Date: 20251204
  Transmission Date: 20260117
  Serious: Yes (Other)
  Sender: PFIZER
  Company Number: GB-MHRA-TPP39298583C7502232YC1753439327460

PATIENT
  Age: 79 Year
  Sex: Male
  Weight: 96 kg

DRUGS (10)
  1. SPIRONOLACTONE [Suspect]
     Active Substance: SPIRONOLACTONE
     Indication: Ill-defined disorder
     Dosage: UNK
     Route: 048
     Dates: start: 20250725
  2. LERCANIDIPINE HYDROCHLORIDE [Concomitant]
     Active Substance: LERCANIDIPINE HYDROCHLORIDE
     Indication: Ill-defined disorder
     Dosage: 1X/DAY (TAKE ONE DAILY)
     Dates: start: 20241210
  3. ATORVASTATIN [Concomitant]
     Active Substance: ATORVASTATIN
     Indication: Ill-defined disorder
     Dosage: UNK, 1X/DAY (ONE TO BE TAKEN AT NIGHT)
     Dates: start: 20241210
  4. BISOPROLOL [Concomitant]
     Active Substance: BISOPROLOL
     Indication: Ill-defined disorder
     Dosage: UNK, 1X/DAY (ONE TO BE TAKEN IN THE MORNING)
     Dates: start: 20241210
  5. FUROSEMIDE [Concomitant]
     Active Substance: FUROSEMIDE
     Indication: Ill-defined disorder
     Dosage: UNK, 1X/DAY (ONE TO BE TAKEN EACH MORNING)
     Dates: start: 20241210
  6. METFORMIN [Concomitant]
     Active Substance: METFORMIN HYDROCHLORIDE
     Indication: Ill-defined disorder
     Dosage: UNK (2 WITH BREAKFAST AND 2 WITH SUPPER)
     Dates: start: 20241210
  7. PERINDOPRIL ERBUMINE [Concomitant]
     Active Substance: PERINDOPRIL ERBUMINE
     Indication: Ill-defined disorder
     Dosage: UNK, 1X/DAY (ONE TO BE TAKEN AT NIGHT)
     Dates: start: 20241210
  8. EDOXABAN [Concomitant]
     Active Substance: EDOXABAN
     Indication: Ill-defined disorder
     Dosage: UNK, 1X/DAY (TAKE ONE A DAY (DOSE REDUCED FROM 60 MG DUE TO)
     Dates: start: 20250113, end: 20250707
  9. EMPAGLIFLOZIN [Concomitant]
     Active Substance: EMPAGLIFLOZIN
     Indication: Ill-defined disorder
     Dosage: UNK, 1X/DAY, TAKE ONE DAILY
     Dates: start: 20250512
  10. APIXABAN [Concomitant]
     Active Substance: APIXABAN
     Indication: Ill-defined disorder
     Dosage: UNK (THIS REPLACES YOUR EDOXABAN. FINISH THIS SUPPLY..)
     Dates: start: 20250707

REACTIONS (2)
  - Hyperkalaemia [Recovering/Resolving]
  - Off label use [Unknown]

NARRATIVE: CASE EVENT DATE: 20250725
